FAERS Safety Report 9158262 (Version 5)
Quarter: 2020Q3

REPORT INFORMATION
  Report Type: Report from Study
  Country: US (occurrence: US)
  Receive Date: 20130312
  Receipt Date: 20131216
  Transmission Date: 20201105
  Serious: Yes (Other)
  Sender: FDA-Public Use
  Company Number: US-ROCHE-1197745

PATIENT
  Sex: Female

DRUGS (1)
  1. IBANDRONIC ACID. [Suspect]
     Active Substance: IBANDRONIC ACID
     Indication: OSTEOPOROSIS POSTMENOPAUSAL
     Dosage: FOR 12 MONTHS
     Route: 048

REACTIONS (10)
  - Spinal fracture [Unknown]
  - Sinus node dysfunction [Unknown]
  - Atrioventricular block [Unknown]
  - Infection [Unknown]
  - Haemorrhoids [Unknown]
  - Foot fracture [Unknown]
  - Neoplasm malignant [Unknown]
  - Hip fracture [Unknown]
  - Wolff-Parkinson-White syndrome [Unknown]
  - Wrist fracture [Unknown]
